FAERS Safety Report 6115479-7 (Version None)
Quarter: 2009Q1

REPORT INFORMATION
  Report Type: 
  Country: None (occurrence: None)
  Receive Date: 20090313
  Receipt Date: 20090302
  Transmission Date: 20090719
  Serious: Yes (Other)
  Sender: FDA-Public Use
  Company Number: GB-JNJFOC-20090302842

PATIENT
  Age: 71 Year
  Sex: Male

DRUGS (10)
  1. TRAMADOL HYDROCHLORIDE [Suspect]
     Indication: PAIN
     Route: 065
  2. CODEINE [Suspect]
     Indication: PAIN
     Route: 065
  3. DICLOFENAC [Suspect]
     Indication: PAIN
     Route: 065
  4. MADOPAR [Suspect]
     Indication: PARKINSON'S DISEASE
     Route: 065
  5. REQUIP [Suspect]
     Route: 048
  6. REQUIP [Suspect]
     Route: 048
  7. REQUIP [Suspect]
     Route: 048
  8. REQUIP [Suspect]
     Indication: PARKINSON'S DISEASE
     Route: 048
  9. MADOPAR [Suspect]
     Dosage: UP TO 6 TABLETS
     Route: 065
  10. MADOPAR [Suspect]
     Route: 065

REACTIONS (4)
  - ASTHENIA [None]
  - DYSSTASIA [None]
  - HALLUCINATION [None]
  - LETHARGY [None]
